FAERS Safety Report 13124747 (Version 1)
Quarter: 2017Q1

REPORT INFORMATION
  Report Type: Spontaneous
  Country: US (occurrence: US)
  Receive Date: 20170116
  Receipt Date: 20170116
  Transmission Date: 20170428
  Serious: Yes (Other)
  Sender: FDA-Public Use
  Company Number: None

PATIENT
  Age: 84 Year
  Sex: Male

DRUGS (6)
  1. DEXAMETHASONE. [Concomitant]
     Active Substance: DEXAMETHASONE
  2. POMALIDOMIDE [Concomitant]
     Active Substance: POMALIDOMIDE
  3. SILDENAFIL. [Concomitant]
     Active Substance: SILDENAFIL
  4. ACYCLOVIR. [Concomitant]
     Active Substance: ACYCLOVIR
  5. POMALYST [Suspect]
     Active Substance: POMALIDOMIDE
     Indication: PLASMA CELL MYELOMA
     Dosage: 3MG DAILY X 21D/28D ORAL
     Route: 048
     Dates: start: 201605, end: 201612
  6. ASPIRIN. [Concomitant]
     Active Substance: ASPIRIN

REACTIONS (1)
  - Rash [None]

NARRATIVE: CASE EVENT DATE: 20161205
